FAERS Safety Report 4852406-4 (Version None)
Quarter: 2005Q4

REPORT INFORMATION
  Report Type: 
  Country: None (occurrence: None)
  Receive Date: 20051129
  Receipt Date: 20050811
  Transmission Date: 20060501
  Serious: No
  Sender: FDA-Public Use
  Company Number: WAES 0508USA02205

PATIENT
  Age: 73 Year
  Sex: Male

DRUGS (3)
  1. ZETIA [Suspect]
     Indication: BLOOD CHOLESTEROL INCREASED
     Dosage: 10 MG/DAILY/PO
     Route: 048
     Dates: start: 20040101
  2. CALAN [Concomitant]
  3. TOPROL-XL [Concomitant]

REACTIONS (1)
  - BACK PAIN [None]
